FAERS Safety Report 14246345 (Version 1)
Quarter: 2017Q4

REPORT INFORMATION
  Report Type: Spontaneous
  Country: US (occurrence: US)
  Receive Date: 20171204
  Receipt Date: 20171204
  Transmission Date: 20180321
  Serious: Yes (Other)
  Sender: FDA-Public Use
  Company Number: US-TEVA-2017-US-828732

PATIENT
  Sex: Female

DRUGS (3)
  1. PACLITAXEL. [Suspect]
     Active Substance: PACLITAXEL
  2. CARBOPLATIN. [Suspect]
     Active Substance: CARBOPLATIN
     Dates: start: 2016
  3. DOXORUBICIN [Suspect]
     Active Substance: DOXORUBICIN
     Dates: start: 2016

REACTIONS (6)
  - Platelet count decreased [Unknown]
  - Pulmonary oedema [Unknown]
  - White blood cell count decreased [Unknown]
  - Pericardial effusion [Unknown]
  - Malaise [Unknown]
  - Fatigue [Unknown]
